FAERS Safety Report 4646367-0 (Version None)
Quarter: 2005Q2

REPORT INFORMATION
  Report Type: 
  Country: None (occurrence: None)
  Receive Date: 20050422
  Receipt Date: 20050412
  Transmission Date: 20051028
  Serious: Yes (Hospitalization)
  Sender: FDA-Public Use
  Company Number: WAES 0404DEU00141

PATIENT
  Age: 63 Year
  Sex: Male

DRUGS (15)
  1. COZAAR [Suspect]
     Indication: CARDIAC FAILURE CONGESTIVE
     Dosage: PO
     Route: 048
     Dates: start: 20031124, end: 20040409
  2. SPIRONOLACTONE [Suspect]
     Indication: CARDIAC FAILURE CONGESTIVE
     Dosage: SEE IMAGE
     Route: 048
     Dates: start: 20030327, end: 20040119
  3. SPIRONOLACTONE [Suspect]
     Indication: CARDIAC FAILURE CONGESTIVE
     Dosage: SEE IMAGE
     Route: 048
     Dates: start: 20040120, end: 20040210
  4. SPIRONOLACTONE [Suspect]
     Indication: CARDIAC FAILURE CONGESTIVE
     Dosage: SEE IMAGE
     Route: 048
     Dates: start: 20040211, end: 20040311
  5. SPIRONOLACTONE [Suspect]
     Indication: CARDIAC FAILURE CONGESTIVE
     Dosage: SEE IMAGE
     Route: 048
     Dates: start: 20040312, end: 20040401
  6. CYNT [Concomitant]
  7. CYNT [Concomitant]
  8. UNAT [Concomitant]
  9. ALLOPURINOL [Concomitant]
  10. BISOPROLOL FUMARATE [Concomitant]
  11. BISOPROLOL FUMARATE [Concomitant]
  12. FUROSEMIDE [Concomitant]
  13. FUROSEMIDE [Concomitant]
  14. NISOLDIPINE [Concomitant]
  15. XIPAMIDE [Concomitant]

REACTIONS (22)
  - AORTIC VALVE DISEASE [None]
  - AORTIC VALVE INCOMPETENCE [None]
  - ARTERIOGRAM CORONARY ABNORMAL [None]
  - BLOOD CREATININE INCREASED [None]
  - BLOOD PRESSURE FLUCTUATION [None]
  - BLOOD PRESSURE INCREASED [None]
  - BLOOD UREA INCREASED [None]
  - BRADYCARDIA [None]
  - CAROTID ARTERY ATHEROMA [None]
  - COLD SWEAT [None]
  - CONGESTIVE CARDIOMYOPATHY [None]
  - DIZZINESS [None]
  - DRUG INTERACTION [None]
  - DYSPNOEA EXERTIONAL [None]
  - ELECTROCARDIOGRAM POOR R-WAVE PROGRESSION [None]
  - EXERCISE TOLERANCE DECREASED [None]
  - FLUID OVERLOAD [None]
  - HYPERKALAEMIA [None]
  - PALPITATIONS [None]
  - SICK SINUS SYNDROME [None]
  - VENTRICULAR DYSFUNCTION [None]
  - VENTRICULAR HYPOKINESIA [None]
